FAERS Safety Report 5042748-4 (Version None)
Quarter: 2006Q2

REPORT INFORMATION
  Report Type: 
  Country: None (occurrence: None)
  Receive Date: 20060627
  Receipt Date: 20060616
  Transmission Date: 20061013
  Serious: Yes (Other)
  Sender: FDA-Public Use
  Company Number: 2006034845

PATIENT
  Age: 45 Year
  Sex: Female
  Weight: 89 kg

DRUGS (3)
  1. ARTHROTEC [Suspect]
     Indication: HEADACHE
     Dosage: 50/0.2 MG (AS NECESSARY), ORAL
     Route: 048
     Dates: start: 20030101, end: 20060308
  2. VIANI (FLUTICASONE PROPIONATE, SALMETEROL XINAFOATE) [Concomitant]
  3. LEVOTHYROXINE SODIUM [Concomitant]

REACTIONS (2)
  - ALVEOLITIS ALLERGIC [None]
  - PNEUMONIA [None]
